FAERS Safety Report 5517470-8 (Version None)
Quarter: 2007Q4

REPORT INFORMATION
  Report Type: 
  Country: None (occurrence: None)
  Receive Date: 20071114
  Receipt Date: 20071105
  Transmission Date: 20080405
  Serious: Yes (Hospitalization, Other)
  Sender: FDA-Public Use
  Company Number: FI-WYE-G00558907

PATIENT
  Age: 27 Year
  Sex: Male

DRUGS (1)
  1. REFACTO [Suspect]
     Indication: FACTOR VIII DEFICIENCY
     Dosage: 1000 IU EVERY 1 TOT
     Dates: start: 20070801, end: 20070801

REACTIONS (3)
  - HYPERSENSITIVITY [None]
  - SENSATION OF FOREIGN BODY [None]
  - URTICARIA [None]
